FAERS Safety Report 11471465 (Version 4)
Quarter: 2016Q1

REPORT INFORMATION
  Report Type: Spontaneous
  Country: BR (occurrence: BR)
  Receive Date: 20150908
  Receipt Date: 20160225
  Transmission Date: 20160525
  Serious: Yes (Disabling, Other)
  Sender: FDA-Public Use
  Company Number: BR-JNJFOC-20150904183

PATIENT
  Age: 62 Year
  Sex: Female
  Weight: 55 kg

DRUGS (10)
  1. SIMPONI [Suspect]
     Active Substance: GOLIMUMAB
     Indication: OSTEOPOROSIS
     Dosage: 0.5 ML/ MES
     Route: 058
     Dates: start: 201312
  2. LOSARTAN POTASSIUM. [Concomitant]
     Active Substance: LOSARTAN POTASSIUM
     Indication: HYPERTENSION
     Route: 065
     Dates: start: 2012
  3. SIMPONI [Suspect]
     Active Substance: GOLIMUMAB
     Indication: RHEUMATOID ARTHRITIS
     Dosage: 0.5 ML/ MES
     Route: 058
     Dates: start: 201312
  4. SIMPONI [Suspect]
     Active Substance: GOLIMUMAB
     Indication: OSTEOARTHRITIS
     Dosage: 0.5 ML/ MES
     Route: 058
     Dates: start: 201312
  5. FOLIC ACID. [Concomitant]
     Active Substance: FOLIC ACID
     Indication: VITAMIN SUPPLEMENTATION
     Route: 065
     Dates: start: 2009
  6. SIMPONI [Suspect]
     Active Substance: GOLIMUMAB
     Indication: RHEUMATOID ARTHRITIS
     Route: 058
     Dates: start: 20160208
  7. SIMPONI [Suspect]
     Active Substance: GOLIMUMAB
     Indication: OSTEOARTHRITIS
     Route: 058
     Dates: start: 20160208
  8. ATENOLOL. [Concomitant]
     Active Substance: ATENOLOL
     Indication: HYPERTENSION
     Route: 065
     Dates: start: 2012
  9. SIMPONI [Suspect]
     Active Substance: GOLIMUMAB
     Indication: OSTEOPOROSIS
     Route: 058
     Dates: start: 20160208
  10. METFORMIN [Concomitant]
     Active Substance: METFORMIN HYDROCHLORIDE
     Indication: DIABETES MELLITUS
     Route: 065
     Dates: start: 2012

REACTIONS (8)
  - Weight decreased [Not Recovered/Not Resolved]
  - Inadequate diet [Not Recovered/Not Resolved]
  - Lower limb fracture [Not Recovered/Not Resolved]
  - Influenza [Not Recovered/Not Resolved]
  - Off label use [Not Recovered/Not Resolved]
  - Product use issue [Not Recovered/Not Resolved]
  - Ear infection [Unknown]
  - Fall [Not Recovered/Not Resolved]

NARRATIVE: CASE EVENT DATE: 201312
